FAERS Safety Report 8743565 (Version 3)
Quarter: 2012Q4

REPORT INFORMATION
  Report Type: 
  Country: US (occurrence: US)
  Receive Date: 20120824
  Receipt Date: 20120921
  Transmission Date: 20130627
  Serious: Yes (Hospitalization, Other)
  Sender: FDA-Public Use
  Company Number: CHPA2012US018299

PATIENT
  Sex: Female

DRUGS (1)
  1. VOLTAREN GEL [Suspect]
     Indication: OSTEOARTHRITIS
     Dosage: Unk, Unk
     Route: 061

REACTIONS (5)
  - Renal failure [Not Recovered/Not Resolved]
  - Staphylococcal infection [Recovered/Resolved]
  - Drug ineffective [Unknown]
  - Dialysis [None]
  - Product quality issue [None]
